FAERS Safety Report 7133881-1 (Version None)
Quarter: 2010Q4

REPORT INFORMATION
  Report Type: 
  Country: None (occurrence: None)
  Receive Date: 20101203
  Receipt Date: 20101118
  Transmission Date: 20110411
  Serious: Yes (Other)
  Sender: FDA-Public Use
  Company Number: US-RANBAXY-2010RR-39862

PATIENT
  Sex: Male

DRUGS (7)
  1. CIPROFLOXACIN [Suspect]
     Indication: INFECTION
     Dosage: UNK
     Dates: start: 20080101
  2. LEVAQUIN [Suspect]
     Indication: LUNG INFECTION
     Dosage: UNK
     Route: 048
     Dates: start: 20080101
  3. LEVAQUIN [Suspect]
     Indication: PNEUMONIA
     Route: 042
  4. SOLU-MEDROL [Suspect]
     Indication: PNEUMONIA
     Route: 065
  5. DUONEB [Concomitant]
  6. LIDOCAINE HYDROCHLORIDE IN PLASTIC CONTAINER [Concomitant]
  7. XYLOCAINE [Concomitant]

REACTIONS (3)
  - MUSCLE RUPTURE [None]
  - SYNOVITIS [None]
  - TENDON RUPTURE [None]
